FAERS Safety Report 8971564 (Version 1)
Quarter: 2012Q4

REPORT INFORMATION
  Report Type: 
  Country: US (occurrence: US)
  Receive Date: 20121217
  Receipt Date: 20121217
  Transmission Date: 20130627
  Serious: Yes (Other)
  Sender: FDA-Public Use
  Company Number: US-BAYER-2012-131404

PATIENT
  Age: 27 Year
  Sex: Male
  Weight: 113 kg

DRUGS (1)
  1. ALKA-SELTZER PLUS [Suspect]
     Indication: SINUS CONGESTION
     Dosage: 2 DF, ONCE
     Route: 048
     Dates: start: 20121210, end: 20121210

REACTIONS (2)
  - Ageusia [Not Recovered/Not Resolved]
  - Drug ineffective [None]
